FAERS Safety Report 24394703 (Version 1)
Quarter: 2024Q4

REPORT INFORMATION
  Report Type: Spontaneous
  Country: CA (occurrence: CA)
  Receive Date: 20241004
  Receipt Date: 20241004
  Transmission Date: 20250115
  Serious: Yes (Hospitalization, Other)
  Sender: ACCORD
  Company Number: None

PATIENT
  Age: 77 Year
  Sex: Male

DRUGS (6)
  1. APIXABAN [Suspect]
     Active Substance: APIXABAN
     Indication: Pulmonary embolism
     Dosage: 2 EVERY 1 DAYS
     Route: 048
  2. ATORVASTATIN [Concomitant]
     Active Substance: ATORVASTATIN
     Route: 065
  3. BISOPROLOL [Concomitant]
     Active Substance: BISOPROLOL\BISOPROLOL FUMARATE
     Route: 065
  4. COLCHICINE [Concomitant]
     Active Substance: COLCHICINE
  5. RAMIPRIL [Concomitant]
     Active Substance: RAMIPRIL
  6. BRINZOLAMIDE, BRIMONIDINE [Concomitant]
     Dosage: SUSPENSION OPHTHALMIC

REACTIONS (2)
  - Cerebrovascular accident [Unknown]
  - Drug effect less than expected [Unknown]
